FAERS Safety Report 21394933 (Version 1)
Quarter: 2022Q3

REPORT INFORMATION
  Report Type: Spontaneous
  Country: US (occurrence: US)
  Receive Date: 20220930
  Receipt Date: 20220930
  Transmission Date: 20221026
  Serious: Yes (Hospitalization, Other)
  Sender: FDA-Public Use
  Company Number: US-RECORDATI RARE DISEASE INC.-2022004399

PATIENT
  Age: 49 Year
  Sex: Female

DRUGS (1)
  1. PANHEMATIN [Suspect]
     Active Substance: HEMIN
     Indication: Porphyria
     Dosage: 350 MILLIGRAM, QM
     Route: 065
     Dates: start: 2014, end: 202202

REACTIONS (2)
  - Porphyria [Unknown]
  - Product availability issue [Unknown]

NARRATIVE: CASE EVENT DATE: 20220601
